FAERS Safety Report 24995439 (Version 1)
Quarter: 2025Q1

REPORT INFORMATION
  Report Type: Spontaneous
  Country: DE (occurrence: DE)
  Receive Date: 20250221
  Receipt Date: 20250221
  Transmission Date: 20250408
  Serious: Yes (Other)
  Sender: RANBAXY
  Company Number: DE-SUN PHARMACEUTICAL INDUSTRIES LTD-2025R1-495081

PATIENT
  Age: 52 Year
  Sex: Female

DRUGS (5)
  1. PREDNISOLONE [Suspect]
     Active Substance: PREDNISOLONE
     Indication: Dermatitis atopic
     Dosage: 40 MILLIGRAM, QD
     Route: 048
  2. NYSTATIN [Suspect]
     Active Substance: NYSTATIN
     Indication: Dermatitis atopic
     Route: 065
  3. PREDNICARBATE [Suspect]
     Active Substance: PREDNICARBATE
     Indication: Dermatitis atopic
     Route: 065
  4. PIMECROLIMUS [Suspect]
     Active Substance: PIMECROLIMUS
     Indication: Dermatitis atopic
     Route: 065
  5. ZINC [Suspect]
     Active Substance: ZINC
     Indication: Dermatitis atopic
     Route: 065

REACTIONS (1)
  - Drug ineffective [Unknown]
